FAERS Safety Report 16559982 (Version 1)
Quarter: 2019Q3

REPORT INFORMATION
  Report Type: Spontaneous
  Country: IN (occurrence: IN)
  Receive Date: 20190711
  Receipt Date: 20190711
  Transmission Date: 20191004
  Serious: Yes (Hospitalization, Other)
  Sender: FDA-Public Use
  Company Number: IN-ACP NIMBLE BUYER INC-GW2019IN000118

PATIENT

DRUGS (2)
  1. ACETAMINOPHEN. [Suspect]
     Active Substance: ACETAMINOPHEN
     Indication: DYSPNOEA
  2. ACETAMINOPHEN. [Suspect]
     Active Substance: ACETAMINOPHEN
     Indication: COUGH

REACTIONS (3)
  - Hepatotoxicity [Recovered/Resolved]
  - Haemolysis [Recovered/Resolved]
  - Overdose [Recovered/Resolved]
